FAERS Safety Report 5870182-3 (Version None)
Quarter: 2008Q3

REPORT INFORMATION
  Report Type: 
  Country: None (occurrence: None)
  Receive Date: 20080904
  Receipt Date: 20080822
  Transmission Date: 20090109
  Serious: Yes (Other)
  Sender: FDA-Public Use
  Company Number: CA-PFIZER INC-2008059606

PATIENT
  Sex: Female
  Weight: 70.3 kg

DRUGS (19)
  1. LYRICA [Suspect]
     Indication: SURGERY
     Route: 048
     Dates: start: 20080111, end: 20080420
  2. LYRICA [Suspect]
     Indication: FIBROMYALGIA
  3. FENTANYL-25 [Concomitant]
     Dosage: DAILY DOSE:50MCG
  4. AMITRIPTYLINE HCL [Concomitant]
     Dosage: DAILY DOSE:125MG
  5. FLURAZEPAM [Concomitant]
     Dosage: DAILY DOSE:30MG
  6. ZOPICLONE [Concomitant]
     Dosage: DAILY DOSE:7.5MG
  7. GABAPENTIN [Concomitant]
     Dosage: DAILY DOSE:300MG-FREQ:2-3 TIMES DAILY AS NEEDED
  8. ACETAMINOPHEN AND OXYCODONE HCL [Concomitant]
  9. HYDRA-ZIDE [Concomitant]
  10. TIZANIDINE HCL [Concomitant]
  11. CRESTOR [Concomitant]
  12. DOMPERIDONE [Concomitant]
  13. BUPROPION HCL [Concomitant]
  14. SYNTHROID [Concomitant]
     Dosage: DAILY DOSE:.2MG
  15. ARTHROTEC [Concomitant]
  16. PANTOPRAZOLE SODIUM [Concomitant]
  17. CLONAZEPAM [Concomitant]
  18. IBUPROFEN [Concomitant]
  19. FIORINAL-C [Concomitant]

REACTIONS (7)
  - ARTHRALGIA [None]
  - PAIN [None]
  - PAIN IN EXTREMITY [None]
  - POST PROCEDURAL COMPLICATION [None]
  - TUNNEL VISION [None]
  - VISION BLURRED [None]
  - VISUAL ACUITY REDUCED [None]
